FAERS Safety Report 5209677-4 (Version None)
Quarter: 2007Q1

REPORT INFORMATION
  Report Type: 
  Country: None (occurrence: None)
  Receive Date: 20070116
  Receipt Date: 20070104
  Transmission Date: 20070707
  Serious: Yes (Hospitalization, Other)
  Sender: FDA-Public Use
  Company Number: US-PFIZER INC-2006125614

PATIENT
  Age: 46 Year
  Sex: Male

DRUGS (10)
  1. LYRICA [Suspect]
     Indication: BACK PAIN
  2. LYRICA [Suspect]
     Indication: POST LAMINECTOMY SYNDROME
  3. METHADONE HCL [Suspect]
     Indication: POST LAMINECTOMY SYNDROME
     Dates: start: 20060925, end: 20060929
  4. MORPHINE [Suspect]
     Dates: start: 20061001
  5. NOVOLIN 50/50 [Concomitant]
  6. ATIVAN [Concomitant]
  7. EFFEXOR [Concomitant]
  8. TYLENOL [Concomitant]
  9. ZOSYN [Concomitant]
  10. AMBIEN [Concomitant]

REACTIONS (6)
  - DEPRESSED LEVEL OF CONSCIOUSNESS [None]
  - FOAMING AT MOUTH [None]
  - IRRITABILITY [None]
  - MENTAL STATUS CHANGES [None]
  - RESTLESSNESS [None]
  - SOMNOLENCE [None]
